FAERS Safety Report 7310372-6 (Version None)
Quarter: 2011Q1

REPORT INFORMATION
  Report Type: 
  Country: None (occurrence: None)
  Receive Date: 20110224
  Receipt Date: 20110202
  Transmission Date: 20110831
  Serious: Yes (Hospitalization, Other)
  Sender: FDA-Public Use
  Company Number: US-SANOFI-AVENTIS-2011SA007685

PATIENT
  Age: 48 Year
  Sex: Female

DRUGS (3)
  1. ARAVA [Suspect]
     Route: 065
  2. TRACLEER [Suspect]
     Indication: PULMONARY ARTERIAL HYPERTENSION
     Route: 048
  3. HYDROXYCHLOROQUINE [Suspect]
     Route: 065

REACTIONS (1)
  - PNEUMONIA [None]
